FAERS Safety Report 6950871-X (Version None)
Quarter: 2010Q3

REPORT INFORMATION
  Report Type: 
  Country: None (occurrence: None)
  Receive Date: 20100828
  Receipt Date: 20100225
  Transmission Date: 20110219
  Serious: No
  Sender: FDA-Public Use
  Company Number: US-ABBOTT-10P-163-0629691-00

PATIENT
  Sex: Male
  Weight: 129.39 kg

DRUGS (11)
  1. NIASPAN [Suspect]
     Indication: HYPERCHOLESTEROLAEMIA
     Dates: start: 20100201
  2. LOVASTATIN [Concomitant]
     Indication: BLOOD CHOLESTEROL INCREASED
  3. TICLOPIDINE HCL [Concomitant]
     Indication: STENT PLACEMENT
  4. GLIPIZIDE [Concomitant]
     Indication: DIABETES MELLITUS
     Dates: start: 20100201
  5. GLIPIZIDE [Concomitant]
     Dates: end: 20100201
  6. LISINOPRIL [Concomitant]
     Indication: HYPERTENSION
  7. TRIAMTERENE AND HYDROCHLOROTHIAZIDE [Concomitant]
     Indication: HYPERTENSION
  8. ASPIRIN [Concomitant]
     Indication: PRODUCT USED FOR UNKNOWN INDICATION
  9. METFORMIN [Concomitant]
     Indication: DIABETES MELLITUS
  10. METOPROLOL [Concomitant]
     Indication: HYPERTENSION
  11. NITROGLYCERIN [Concomitant]
     Indication: ANGINA PECTORIS

REACTIONS (1)
  - BLOOD GLUCOSE INCREASED [None]
